FAERS Safety Report 7604168-5 (Version None)
Quarter: 2011Q2

REPORT INFORMATION
  Report Type: 
  Country: None (occurrence: None)
  Receive Date: 20110630
  Receipt Date: 20110616
  Transmission Date: 20111010
  Serious: No
  Sender: FDA-Public Use
  Company Number: TCI2011A03592

PATIENT

DRUGS (1)
  1. ACTOS [Suspect]
     Route: 048

REACTIONS (1)
  - BLADDER CANCER [None]
